FAERS Safety Report 6031027-4 (Version None)
Quarter: 2009Q1

REPORT INFORMATION
  Report Type: 
  Country: None (occurrence: None)
  Receive Date: 20090108
  Receipt Date: 20090105
  Transmission Date: 20090719
  Serious: Yes (Hospitalization, Other)
  Sender: FDA-Public Use
  Company Number: CA-JNJFOC-20081206009

PATIENT
  Sex: Male

DRUGS (7)
  1. TRAMACET [Suspect]
     Indication: DRUG USE FOR UNKNOWN INDICATION
     Dosage: 1-4 TABLETS DAILY
  2. ESOMEPRAZOLE MAGNESIUM [Concomitant]
     Route: 065
  3. ALLOPURINOL [Concomitant]
     Route: 065
  4. COLCHICINE [Concomitant]
     Indication: GOUT
     Route: 065
  5. LOPERAMIDE HCL [Concomitant]
     Dosage: AS NEEDED
     Route: 065
  6. DIMENHYDRINATE [Concomitant]
     Route: 065
  7. NORTRIPTYLINE HCL [Concomitant]
     Route: 065

REACTIONS (1)
  - PANCREATITIS [None]
